FAERS Safety Report 21472632 (Version 2)
Quarter: 2022Q4

REPORT INFORMATION
  Report Type: Report from Study
  Country: US (occurrence: US)
  Receive Date: 20221018
  Receipt Date: 20221029
  Transmission Date: 20230113
  Serious: No
  Sender: FDA-Public Use
  Company Number: US-ABBVIE-4150925

PATIENT
  Age: 65 Year
  Sex: Male

DRUGS (2)
  1. IMBRUVICA [Suspect]
     Active Substance: IBRUTINIB
     Indication: Waldenstrom^s macroglobulinaemia
     Route: 048
     Dates: start: 202207
  2. IMBRUVICA [Suspect]
     Active Substance: IBRUTINIB
     Indication: Waldenstrom^s macroglobulinaemia
     Route: 048

REACTIONS (6)
  - Foot fracture [Not Recovered/Not Resolved]
  - Limb injury [Unknown]
  - Mobility decreased [Unknown]
  - Arthritis [Unknown]
  - Neck pain [Unknown]
  - Coccydynia [Not Recovered/Not Resolved]

NARRATIVE: CASE EVENT DATE: 20220201
